FAERS Safety Report 8198582-X (Version None)
Quarter: 2012Q1

REPORT INFORMATION
  Report Type: 
  Country: None (occurrence: None)
  Receive Date: 20120309
  Receipt Date: 20120113
  Transmission Date: 20120608
  Serious: No
  Sender: FDA-Public Use
  Company Number: US-AMGEN-USASP2012002679

PATIENT
  Age: 71 Year
  Sex: Female

DRUGS (11)
  1. KLONOPIN [Concomitant]
  2. PROLIA [Suspect]
     Indication: OSTEOPOROSIS POSTMENOPAUSAL
     Dosage: UNK UNK, Q6MO
     Route: 058
     Dates: start: 20101201
  3. COZAAR [Concomitant]
  4. VICODIN [Concomitant]
  5. K PHOS NEUTRAL [Concomitant]
  6. CALCITRIOL [Concomitant]
  7. VITAMIN D [Concomitant]
  8. NEXIUM [Concomitant]
     Dosage: UNK
  9. PAXIL [Concomitant]
     Dosage: UNK
  10. CALCIUM [Concomitant]
  11. METOPROLOL SUCCINATE [Concomitant]

REACTIONS (5)
  - CATARACT [None]
  - ACNE [None]
  - RASH PAPULAR [None]
  - SKIN DISORDER [None]
  - RASH PRURITIC [None]
